FAERS Safety Report 9681422 (Version 1)
Quarter: 2013Q4

REPORT INFORMATION
  Report Type: Spontaneous
  Country: US (occurrence: US)
  Receive Date: 20131111
  Receipt Date: 20131111
  Transmission Date: 20140711
  Serious: No
  Sender: FDA-Public Use
  Company Number: US-009507513-1311USA000317

PATIENT
  Age: 60 Year
  Sex: Male

DRUGS (5)
  1. COSOPT PF [Suspect]
     Indication: GLAUCOMA
     Dosage: 1 GTT, IN ONE EYE BID
     Route: 047
     Dates: start: 201301
  2. LIPITOR [Concomitant]
  3. ALLOPURINOL [Concomitant]
  4. ALPHAGAN [Concomitant]
     Dosage: UNK, QD
     Route: 047
  5. XALATAN [Concomitant]
     Dosage: 1 GTT, QD

REACTIONS (1)
  - Blood potassium increased [Unknown]
